FAERS Safety Report 16730101 (Version 1)
Quarter: 2019Q3

REPORT INFORMATION
  Report Type: Spontaneous
  Country: US (occurrence: US)
  Receive Date: 20190822
  Receipt Date: 20190822
  Transmission Date: 20191005
  Serious: No
  Sender: FDA-Public Use
  Company Number: US-PACIRA-201600064

PATIENT
  Age: 70 Year
  Sex: Female
  Weight: 73 kg

DRUGS (1)
  1. EXPAREL [Suspect]
     Active Substance: BUPIVACAINE
     Indication: POSTOPERATIVE ANALGESIA
     Dosage: UNK UNK, UNK, FREQUENCY : UNK
     Route: 065
     Dates: start: 20160518, end: 20160518

REACTIONS (3)
  - Pain [Unknown]
  - Vulvovaginal pruritus [Unknown]
  - Crying [Unknown]

NARRATIVE: CASE EVENT DATE: 20160519
